FAERS Safety Report 15406461 (Version 1)
Quarter: 2018Q3

REPORT INFORMATION
  Report Type: Spontaneous
  Country: US (occurrence: US)
  Receive Date: 20180919
  Receipt Date: 20180919
  Transmission Date: 20181010
  Serious: Yes (Disabling)
  Sender: FDA-Public Use
  Company Number: None

PATIENT
  Age: 53 Year
  Sex: Female
  Weight: 68.04 kg

DRUGS (1)
  1. AMANTADINE 100 MG [Suspect]
     Active Substance: AMANTADINE
     Indication: PARKINSON^S DISEASE
     Dosage: ?          QUANTITY:1 CAPSULE ;?
     Route: 048

REACTIONS (2)
  - Sexual dysfunction [None]
  - Anorgasmia [None]

NARRATIVE: CASE EVENT DATE: 201805
